FAERS Safety Report 12851185 (Version 6)
Quarter: 2025Q1

REPORT INFORMATION
  Report Type: Report from Study
  Country: US (occurrence: US)
  Receive Date: 20161015
  Receipt Date: 20250216
  Transmission Date: 20250409
  Serious: Yes (Hospitalization, Other)
  Sender: AMGEN
  Company Number: US-AMGEN-USASL2016141894

PATIENT
  Age: 64 Year
  Sex: Female

DRUGS (9)
  1. ENBREL [Suspect]
     Active Substance: ETANERCEPT
     Indication: Rheumatoid arthritis
     Dosage: 25 MILLIGRAM, 2 TIMES/WK
     Route: 065
     Dates: start: 19990909
  2. ENBREL [Suspect]
     Active Substance: ETANERCEPT
     Route: 065
  3. ENBREL [Suspect]
     Active Substance: ETANERCEPT
     Route: 065
  4. ENBREL [Suspect]
     Active Substance: ETANERCEPT
     Route: 065
  5. ENBREL [Suspect]
     Active Substance: ETANERCEPT
     Dosage: 50 MILLIGRAM, QWK
     Route: 065
  6. ENBREL [Suspect]
     Active Substance: ETANERCEPT
     Dosage: 50 MILLIGRAM, QWK
     Route: 065
     Dates: start: 20221107
  7. PREDNISONE [Suspect]
     Active Substance: PREDNISONE
     Indication: Product used for unknown indication
     Dosage: 5 MILLIGRAM, QD
     Route: 065
  8. CALCIUM [Concomitant]
     Active Substance: CALCIUM
  9. METHOTREXATE [Concomitant]
     Active Substance: METHOTREXATE

REACTIONS (25)
  - Open fracture [Unknown]
  - Spinal compression fracture [Unknown]
  - Lumbar vertebral fracture [Unknown]
  - Loss of personal independence in daily activities [Unknown]
  - Peripheral swelling [Unknown]
  - Hypertension [Unknown]
  - Rheumatoid arthritis [Unknown]
  - Spinal fracture [Unknown]
  - Visual impairment [Not Recovered/Not Resolved]
  - Blepharospasm [Unknown]
  - Tooth infection [Unknown]
  - Psoriasis [Recovered/Resolved]
  - Posture abnormal [Unknown]
  - Pain [Unknown]
  - Exostosis [Unknown]
  - Back pain [Unknown]
  - Therapy interrupted [Unknown]
  - Rhinorrhoea [Unknown]
  - Skin exfoliation [Unknown]
  - Onycholysis [Unknown]
  - Cough [Unknown]
  - Onychomadesis [Unknown]
  - Erythema [Recovering/Resolving]
  - Papule [Recovering/Resolving]
  - Osteoporosis [Unknown]

NARRATIVE: CASE EVENT DATE: 20160101
